FAERS Safety Report 23784416 (Version 1)
Quarter: 2024Q2

REPORT INFORMATION
  Report Type: Spontaneous
  Country: US (occurrence: None)
  Receive Date: 20240425
  Receipt Date: 20240425
  Transmission Date: 20240716
  Serious: No
  Sender: FDA-Public Use
  Company Number: None

PATIENT
  Age: 59 Year
  Sex: Female
  Weight: 98.55 kg

DRUGS (20)
  1. AUSTEDO [Suspect]
     Active Substance: DEUTETRABENAZINE
     Indication: Tardive dyskinesia
     Dosage: 1 TABLET ORAL
     Route: 048
     Dates: start: 20240404
  2. ALENDRONATE [Concomitant]
     Active Substance: ALENDRONATE SODIUM
  3. ATORVASTATIN [Concomitant]
     Active Substance: ATORVASTATIN
  4. azelastine nasal [Concomitant]
  5. BOSENTAN [Concomitant]
     Active Substance: BOSENTAN
  6. FENOFIBRATE [Concomitant]
     Active Substance: FENOFIBRATE
  7. LEVOTHYROXINE [Concomitant]
     Active Substance: LEVOTHYROXINE\LEVOTHYROXINE SODIUM
  8. SILDENAFIL [Concomitant]
     Active Substance: SILDENAFIL
  9. TOPAMAX [Concomitant]
     Active Substance: TOPIRAMATE
  10. linzsess [Concomitant]
  11. LAMOTRIGINE [Concomitant]
     Active Substance: LAMOTRIGINE
  12. QUETIAPINE [Concomitant]
     Active Substance: QUETIAPINE
  13. olenzipine [Concomitant]
  14. AUSTEDO [Concomitant]
     Active Substance: DEUTETRABENAZINE
  15. APAP [Concomitant]
     Active Substance: ACETAMINOPHEN
  16. MAGNESIUM [Concomitant]
     Active Substance: MAGNESIUM
  17. DIETARY SUPPLEMENT [Concomitant]
     Active Substance: DIETARY SUPPLEMENT
  18. VITAMIN D [Concomitant]
     Active Substance: VITAMIN D NOS
  19. DOCUSATE SOD [Concomitant]
  20. METAMUCIL [Concomitant]
     Active Substance: PLANTAGO SEED

REACTIONS (3)
  - Tinnitus [None]
  - Insomnia [None]
  - Fatigue [None]

NARRATIVE: CASE EVENT DATE: 20240416
